FAERS Safety Report 19236818 (Version 1)
Quarter: 2021Q2

REPORT INFORMATION
  Report Type: Spontaneous
  Country: US (occurrence: US)
  Receive Date: 20210507
  Receipt Date: 20210507
  Transmission Date: 20210717
  Serious: Yes (Other)
  Sender: FDA-Public Use
  Company Number: None

PATIENT
  Age: 69 Year
  Sex: Female
  Weight: 64.8 kg

DRUGS (1)
  1. VENOFER [Suspect]
     Active Substance: IRON SUCROSE
     Indication: ANAEMIA
     Dosage: ?          OTHER FREQUENCY:ONE TIME DOSE;?
     Route: 041
     Dates: start: 20210505, end: 20210505

REACTIONS (3)
  - Shock [None]
  - Pulmonary embolism [None]
  - Infusion related reaction [None]

NARRATIVE: CASE EVENT DATE: 20210505
